FAERS Safety Report 8913459 (Version 3)
Quarter: 2013Q1

REPORT INFORMATION
  Report Type: Spontaneous
  Country: US (occurrence: US)
  Receive Date: 20121119
  Receipt Date: 20130124
  Transmission Date: 20140127
  Serious: No
  Sender: FDA-Public Use
  Company Number: US-PFIZER INC-2012287413

PATIENT
  Age: 62 Year
  Sex: Male
  Weight: 79.37 kg

DRUGS (2)
  1. ALPRAZOLAM [Suspect]
     Indication: GENERALISED ANXIETY DISORDER
     Dosage: 0.5 MG, 4X/DAY
     Route: 048
  2. FLUVOXAMINE [Concomitant]
     Dosage: 50 MG, 3X/DAY

REACTIONS (4)
  - Drug ineffective [Unknown]
  - Withdrawal syndrome [Not Recovered/Not Resolved]
  - Hyperventilation [Not Recovered/Not Resolved]
  - Cold sweat [Not Recovered/Not Resolved]
